FAERS Safety Report 7312121-4 (Version None)
Quarter: 2011Q1

REPORT INFORMATION
  Report Type: 
  Country: None (occurrence: None)
  Receive Date: 20110224
  Receipt Date: 20110217
  Transmission Date: 20110831
  Serious: Yes (Hospitalization)
  Sender: FDA-Public Use
  Company Number: NL-MEDIMMUNE-MEDI-0012665

PATIENT
  Sex: Female
  Weight: 3.4 kg

DRUGS (2)
  1. SYNAGIS [Suspect]
     Route: 030
     Dates: start: 20101124, end: 20110117
  2. SYNAGIS [Suspect]
     Route: 030
     Dates: start: 20110214

REACTIONS (6)
  - MALABSORPTION [None]
  - WEIGHT GAIN POOR [None]
  - NASOPHARYNGITIS [None]
  - RHINORRHOEA [None]
  - OLIGODIPSIA [None]
  - PYREXIA [None]
